FAERS Safety Report 20155364 (Version 1)
Quarter: 2021Q4

REPORT INFORMATION
  Report Type: Report from Study
  Country: GF (occurrence: GF)
  Receive Date: 20211207
  Receipt Date: 20211207
  Transmission Date: 20220303
  Serious: Yes (Other)
  Sender: FDA-Public Use
  Company Number: GF-GILEAD-2021-0558311

PATIENT
  Sex: Male

DRUGS (3)
  1. AMPHOTERICIN B [Suspect]
     Active Substance: AMPHOTERICIN B
     Indication: Cutaneous leishmaniasis
     Route: 065
  2. MILTEFOSINE [Concomitant]
     Active Substance: MILTEFOSINE
     Indication: Product used for unknown indication
     Dosage: UNK UNK, UNKNOWN FREQ.
     Route: 065
  3. MEGLUMINE ANTIMONIATE [Concomitant]
     Active Substance: MEGLUMINE ANTIMONIATE
     Indication: Product used for unknown indication
     Dosage: UNK UNK, UNKNOWN FREQ.
     Route: 065

REACTIONS (1)
  - Drug ineffective [Unknown]
